FAERS Safety Report 9158697 (Version 1)
Quarter: 2013Q1

REPORT INFORMATION
  Report Type: Spontaneous
  Country: US (occurrence: US)
  Receive Date: 20130312
  Receipt Date: 20130312
  Transmission Date: 20140127
  Serious: Yes (Hospitalization, Other)
  Sender: FDA-Public Use
  Company Number: US-US-EMD SERONO, INC.-232481J10USA

PATIENT
  Sex: Female
  Weight: 114 kg

DRUGS (11)
  1. REBIF [Suspect]
     Indication: RELAPSING-REMITTING MULTIPLE SCLEROSIS
     Route: 058
     Dates: start: 20040202
  2. GABAPENTIN [Concomitant]
     Indication: PARAESTHESIA
     Route: 048
  3. LOVASTATIN [Concomitant]
     Indication: HYPERLIPIDAEMIA
  4. LISINOPRIL AND HYDROCHLOROTHIAZIDE [Concomitant]
     Indication: HYPERTENSION
  5. DILTIAZEM [Concomitant]
  6. ASPIRIN [Concomitant]
  7. GLUCOSAMINE [Concomitant]
  8. VITAMIN D [Concomitant]
  9. FLAX SEED OIL [Concomitant]
  10. CALCIUM [Concomitant]
  11. MULTIVITAMINS [Concomitant]

REACTIONS (4)
  - Atrial fibrillation [Not Recovered/Not Resolved]
  - Dilatation atrial [Unknown]
  - Sleep apnoea syndrome [Unknown]
  - Restless legs syndrome [Unknown]
